FAERS Safety Report 10311019 (Version 1)
Quarter: 2014Q3

REPORT INFORMATION
  Report Type: Spontaneous
  Country: DE (occurrence: None)
  Receive Date: 20140715
  Receipt Date: 20140715
  Transmission Date: 20150326
  Serious: Yes (Other)
  Sender: FDA-Public Use
  Company Number: AUR-APL-2014-07362

PATIENT
  Age: 50 Year
  Sex: Female
  Weight: 78 kg

DRUGS (5)
  1. ELIQUIS [Suspect]
     Active Substance: APIXABAN
     Indication: FACTOR V DEFICIENCY
     Route: 048
     Dates: start: 201311
  2. OMEPRAZOLE (OMEPRAZOLE) UNKNOWN [Suspect]
     Active Substance: OMEPRAZOLE
     Indication: PRODUCT USED FOR UNKNOWN INDICATION
  3. LISINOPRIL. [Suspect]
     Active Substance: LISINOPRIL
     Indication: PRODUCT USED FOR UNKNOWN INDICATION
  4. ELIQUIS [Suspect]
     Active Substance: APIXABAN
     Indication: CEREBROVASCULAR ACCIDENT PROPHYLAXIS
     Route: 048
     Dates: start: 201311
  5. ELIQUIS [Suspect]
     Active Substance: APIXABAN
     Indication: ATRIAL SEPTAL DEFECT
     Route: 048
     Dates: start: 201311

REACTIONS (1)
  - Breast cancer [None]

NARRATIVE: CASE EVENT DATE: 20140407
